FAERS Safety Report 25733024 (Version 1)
Quarter: 2025Q3

REPORT INFORMATION
  Report Type: Spontaneous
  Country: IN (occurrence: IN)
  Receive Date: 20250828
  Receipt Date: 20250828
  Transmission Date: 20251021
  Serious: Yes (Other)
  Sender: VIIV
  Company Number: IN-VIIV HEALTHCARE-IN2025GSK108402

PATIENT
  Age: 46 Year
  Sex: Male

DRUGS (1)
  1. DOLUTEGRAVIR [Suspect]
     Active Substance: DOLUTEGRAVIR
     Indication: Retroviral infection

REACTIONS (1)
  - Cholestatic liver injury [Recovered/Resolved]
